FAERS Safety Report 6652291-4 (Version None)
Quarter: 2010Q1

REPORT INFORMATION
  Report Type: 
  Country: None (occurrence: None)
  Receive Date: 20100325
  Receipt Date: 20090523
  Transmission Date: 20100710
  Serious: Yes (Disabling, Other)
  Sender: FDA-Public Use
  Company Number: PHEH2009US05454

PATIENT
  Age: 65 Year
  Sex: Female

DRUGS (5)
  1. RECLAST [Suspect]
     Indication: OSTEOPOROSIS
     Dosage: 5MG Q YEAR
     Route: 042
     Dates: start: 20090514
  2. ADVAIR DISKUS 100/50 [Concomitant]
     Dosage: PUFF
  3. BENTYL [Concomitant]
     Route: 048
  4. ACCOLATE [Concomitant]
     Route: 048
  5. WELLBUTRIN [Concomitant]
     Indication: ANXIETY
     Dosage: UNK
     Route: 048

REACTIONS (17)
  - ANGER [None]
  - ARTHRALGIA [None]
  - ASTHENIA [None]
  - CRYING [None]
  - DEPRESSED MOOD [None]
  - FOOT FRACTURE [None]
  - GASTROOESOPHAGEAL REFLUX DISEASE [None]
  - IMPAIRED WORK ABILITY [None]
  - INFLUENZA LIKE ILLNESS [None]
  - JOINT LOCK [None]
  - JOINT SWELLING [None]
  - MALAISE [None]
  - MUSCULOSKELETAL STIFFNESS [None]
  - OEDEMA PERIPHERAL [None]
  - PAIN [None]
  - SELF-INJURIOUS IDEATION [None]
  - SWELLING [None]
